FAERS Safety Report 20372854 (Version 2)
Quarter: 2022Q1

REPORT INFORMATION
  Report Type: Spontaneous
  Country: RU (occurrence: RU)
  Receive Date: 20220125
  Receipt Date: 20220127
  Transmission Date: 20220423
  Serious: Yes (Death)
  Sender: FDA-Public Use
  Company Number: RU-JNJFOC-20220124358

PATIENT
  Age: 56 Year
  Sex: Female
  Weight: 72 kg

DRUGS (8)
  1. UPTRAVI [Suspect]
     Active Substance: SELEXIPAG
     Indication: Pulmonary arterial hypertension
     Dosage: MAXIMUM DOSE?1400 MCG 2 TIMES A DAY PER OS
     Route: 048
     Dates: start: 20200727
  2. BISOPROLOL FUMARATE [Concomitant]
     Active Substance: BISOPROLOL FUMARATE
  3. VEROSHPIRON [Concomitant]
  4. TORSEMIDE [Concomitant]
     Active Substance: TORSEMIDE
  5. MACICENTAN [Concomitant]
  6. WARFARIN [Concomitant]
     Active Substance: WARFARIN
  7. RIOCIGUAT [Concomitant]
     Active Substance: RIOCIGUAT
  8. ATORVASTATIN [Concomitant]
     Active Substance: ATORVASTATIN

REACTIONS (1)
  - COVID-19 [Fatal]
